FAERS Safety Report 21848185 (Version 2)
Quarter: 2023Q1

REPORT INFORMATION
  Report Type: Spontaneous
  Country: CA (occurrence: CA)
  Receive Date: 20230111
  Receipt Date: 20230130
  Transmission Date: 20230418
  Serious: Yes (Hospitalization)
  Sender: FDA-Public Use
  Company Number: CA-PFIZER INC-PV202200044217

PATIENT
  Age: 68 Year
  Sex: Male

DRUGS (1)
  1. SUTENT [Suspect]
     Active Substance: SUNITINIB MALATE
     Dosage: UNK, CYCLIC (3 WEEKS ON/1 WEEK OFF)
     Dates: start: 20220804

REACTIONS (3)
  - Vomiting [Recovering/Resolving]
  - Nausea [Unknown]
  - Feeding disorder [Unknown]
